FAERS Safety Report 6552265-8 (Version None)
Quarter: 2010Q1

REPORT INFORMATION
  Report Type: 
  Country: None (occurrence: None)
  Receive Date: 20100121
  Receipt Date: 20100106
  Transmission Date: 20100710
  Serious: Yes (Death, Hospitalization, Other)
  Sender: FDA-Public Use
  Company Number: KV201000007

PATIENT
  Age: 43 Year
  Sex: Female
  Weight: 57.6 kg

DRUGS (8)
  1. MORPHINE SULFATE [Suspect]
     Indication: PAIN
     Dosage: 60 MG, BID, ORAL; 60 MG, TID, ORAL
     Route: 048
     Dates: start: 20061104, end: 20080522
  2. MORPHINE SULFATE [Suspect]
     Indication: PAIN
     Dosage: 60 MG, BID, ORAL; 60 MG, TID, ORAL
     Route: 048
     Dates: start: 20080522
  3. MORPHINE SULFATE [Suspect]
     Indication: PAIN
     Dosage: 30 MG, BID, ORAL; 30 MG, TID, ORAL
     Route: 048
     Dates: end: 20060506
  4. MORPHINE SULFATE [Suspect]
     Indication: PAIN
     Dosage: 30 MG, BID, ORAL; 30 MG, TID, ORAL
     Route: 048
     Dates: start: 20060506, end: 20061104
  5. NORCO [Concomitant]
  6. PROZAC [Concomitant]
  7. CYMBALTA [Concomitant]
  8. BUPROPION HCL [Concomitant]

REACTIONS (14)
  - ANXIETY [None]
  - ASTHENIA [None]
  - CONVULSION [None]
  - DEPRESSION [None]
  - DIABETES MELLITUS INADEQUATE CONTROL [None]
  - DRUG TOXICITY [None]
  - HALLUCINATION, AUDITORY [None]
  - HYPERSOMNIA [None]
  - HYPOGLYCAEMIA [None]
  - IMPULSIVE BEHAVIOUR [None]
  - INDIFFERENCE [None]
  - MEMORY IMPAIRMENT [None]
  - SUICIDAL IDEATION [None]
  - WEIGHT INCREASED [None]
